FAERS Safety Report 16850678 (Version 1)
Quarter: 2019Q3

REPORT INFORMATION
  Report Type: Spontaneous
  Country: US (occurrence: US)
  Receive Date: 20190925
  Receipt Date: 20190925
  Transmission Date: 20191005
  Serious: No
  Sender: FDA-Public Use
  Company Number: US-THERAPEUTICSMD-2019TMD01725

PATIENT
  Age: 67 Year
  Sex: Female

DRUGS (2)
  1. IMVEXXY [Suspect]
     Active Substance: ESTRADIOL
     Indication: VAGINAL DISORDER
     Dosage: 4 ?G, 2X/WEEK
     Route: 067
     Dates: start: 20190520, end: 2019
  2. IMVEXXY [Suspect]
     Active Substance: ESTRADIOL
     Indication: GENITO-PELVIC PAIN/PENETRATION DISORDER
     Dosage: 2 ?G, 2X/WEEK AS NEEDED
     Route: 067
     Dates: start: 2019, end: 2019

REACTIONS (4)
  - Sinusitis [Recovered/Resolved]
  - Nausea [Recovered/Resolved]
  - Respiratory tract infection viral [Recovered/Resolved]
  - Off label use [Recovered/Resolved]

NARRATIVE: CASE EVENT DATE: 2019
